FAERS Safety Report 9539969 (Version 2)
Quarter: 2014Q1

REPORT INFORMATION
  Report Type: Report from Study
  Country: CA (occurrence: CA)
  Receive Date: 20130920
  Receipt Date: 20140130
  Transmission Date: 20141002
  Serious: Yes (Other)
  Sender: FDA-Public Use
  Company Number: CA-JNJFOC-20130909559

PATIENT
  Age: 38 Year
  Sex: Female
  Weight: 54.6 kg

DRUGS (4)
  1. REMICADE [Suspect]
     Indication: COLITIS ULCERATIVE
     Route: 042
     Dates: start: 20120317
  2. ENEMAS [Concomitant]
     Route: 065
  3. FUCIDIN [Concomitant]
     Route: 065
  4. BETAMETHASONE [Concomitant]
     Route: 065

REACTIONS (2)
  - Thyroid neoplasm [Not Recovered/Not Resolved]
  - Drug dose omission [Unknown]
